FAERS Safety Report 9400685 (Version 1)
Quarter: 2013Q3

REPORT INFORMATION
  Report Type: Spontaneous
  Country: US (occurrence: None)
  Receive Date: 20130712
  Receipt Date: 20130712
  Transmission Date: 20140515
  Serious: No
  Sender: FDA-Public Use
  Company Number: None

PATIENT
  Age: 65 None
  Sex: Female

DRUGS (1)
  1. LISINOPRIL [Suspect]

REACTIONS (18)
  - Swelling face [None]
  - Eye pain [None]
  - Bone pain [None]
  - Toothache [None]
  - Tooth loss [None]
  - Tooth fracture [None]
  - Tooth disorder [None]
  - Pharyngeal disorder [None]
  - Sleep disorder [None]
  - Headache [None]
  - Respiratory disorder [None]
  - Hypertension [None]
  - Dizziness [None]
  - Choking [None]
  - Chest pain [None]
  - Neuralgia [None]
  - Facial pain [None]
  - Economic problem [None]
